FAERS Safety Report 4742109-9 (Version None)
Quarter: 2005Q3

REPORT INFORMATION
  Report Type: 
  Country: None (occurrence: None)
  Receive Date: 20050810
  Receipt Date: 20050810
  Transmission Date: 20060218
  Serious: Yes (Hospitalization)
  Sender: FDA-Public Use
  Company Number: None

PATIENT
  Age: 81 Year
  Sex: Male
  Weight: 83.4619 kg

DRUGS (27)
  1. FUROSEMIDE [Suspect]
     Indication: CARDIAC FAILURE CONGESTIVE
     Dosage: 80 MG BID PO INCREASE 3/17/05
     Route: 048
     Dates: start: 20050317
  2. LISINOPRIL [Suspect]
     Indication: CARDIAC FAILURE CONGESTIVE
     Dosage: 20 MG BID INCREASE 3/17/05
     Dates: start: 20050317
  3. METOPROLOL SA 25 MG DAILY INCREASE 5/ [Suspect]
  4. METOLOZONE ? DOSE ADDED APPROX 3/10/ [Suspect]
  5. ACCU-CHEK COMFORT CV (GLUCOSE) TEST STRIP [Concomitant]
  6. ALBUTEROL SULFATE AND IPRATROPIUM BROMIDE [Concomitant]
  7. ALBUTEROL [Concomitant]
  8. ALCOHOL PREP PAD [Concomitant]
  9. ALLOPURINOL [Concomitant]
  10. CLOPIDOGREL BISULFATE [Concomitant]
  11. CLOTRIMAZOLE [Concomitant]
  12. COLCHICINE [Concomitant]
  13. COLESTIPOL HCL [Concomitant]
  14. FLUNISOLIDE INH [Concomitant]
  15. GLYBURIDE [Concomitant]
  16. HYDROCORTISONE [Concomitant]
  17. HUMULIN N [Concomitant]
  18. INSULIN SYRINGE [Concomitant]
  19. SYNTHROID [Concomitant]
  20. NITROGLYCERIN [Concomitant]
  21. FUROSEMIDE [Concomitant]
  22. LISINOPRIL [Concomitant]
  23. METOPROLOL SUCCINATE [Concomitant]
  24. PAROXETINE HCL [Concomitant]
  25. POTASSIUM CHLORIDE [Concomitant]
  26. TABLET CUTTER [Concomitant]
  27. NON-VA ASPIRIN TAB, EC [Concomitant]

REACTIONS (5)
  - DEHYDRATION [None]
  - DIZZINESS [None]
  - FALL [None]
  - ORAL INTAKE REDUCED [None]
  - RENAL FAILURE [None]
